FAERS Safety Report 9681959 (Version 3)
Quarter: 2014Q1

REPORT INFORMATION
  Report Type: Spontaneous
  Country: US (occurrence: US)
  Receive Date: 20131111
  Receipt Date: 20140127
  Transmission Date: 20141002
  Serious: Yes (Death, Other)
  Sender: FDA-Public Use
  Company Number: US-PFIZER INC-2013320490

PATIENT
  Sex: Male

DRUGS (1)
  1. HEPARIN SODIUM [Suspect]
     Dosage: UNK

REACTIONS (9)
  - Thrombosis [Fatal]
  - Rib fracture [Fatal]
  - Gangrene [Fatal]
  - Pulmonary thrombosis [Fatal]
  - Venous thrombosis [Fatal]
  - Arterial thrombosis [Fatal]
  - Heparin-induced thrombocytopenia [Fatal]
  - Dyspnoea [Unknown]
  - Pain in extremity [Unknown]
